FAERS Safety Report 17407303 (Version 1)
Quarter: 2020Q1

REPORT INFORMATION
  Report Type: Spontaneous
  Country: US (occurrence: US)
  Receive Date: 20200128
  Receipt Date: 20200128
  Transmission Date: 20200409
  Serious: Yes (Hospitalization)
  Sender: FDA-Public Use
  Company Number: None

PATIENT
  Age: 60 Year
  Sex: Female

DRUGS (11)
  1. DEXILANT [Concomitant]
     Active Substance: DEXLANSOPRAZOLE
  2. NIFEDIPINE. [Concomitant]
     Active Substance: NIFEDIPINE
  3. CEVIMELINE. [Concomitant]
     Active Substance: CEVIMELINE
  4. ONDANSETRON ODT 4MG TAB [Suspect]
     Active Substance: ONDANSETRON
     Dosage: 4MG 1X EVERY 8 HOURS ORAL
     Route: 048
     Dates: start: 20190911
  5. URSODIOL. [Concomitant]
     Active Substance: URSODIOL
  6. MOTEGRITY [Concomitant]
     Active Substance: PRUCALOPRIDE SUCCINATE
  7. BUMETANIDE. [Concomitant]
     Active Substance: BUMETANIDE
  8. TRAMADOL. [Concomitant]
     Active Substance: TRAMADOL
  9. SPIRONOLACT [Concomitant]
     Active Substance: SPIRONOLACTONE
  10. RANITIDINE. [Concomitant]
     Active Substance: RANITIDINE
  11. HYDROXYCHLOR [Concomitant]
     Active Substance: HYDROXYCHLOROQUINE

REACTIONS (1)
  - Hospitalisation [None]

NARRATIVE: CASE EVENT DATE: 20200127
